FAERS Safety Report 24186485 (Version 1)
Quarter: 2024Q3

REPORT INFORMATION
  Report Type: Spontaneous
  Country: JP (occurrence: JP)
  Receive Date: 20240808
  Receipt Date: 20240808
  Transmission Date: 20241017
  Serious: Yes (Other)
  Sender: GENMAB
  Company Number: JP-GENMAB-2024-02802

PATIENT

DRUGS (1)
  1. EPKINLY [Suspect]
     Active Substance: EPCORITAMAB-BYSP
     Indication: Product used for unknown indication
     Dosage: 48 MILLIGRAM, WEEKLY, EPKINLY WAS ADMINISTERED UP TO CYCLE 1 DAY 15.
     Route: 065

REACTIONS (1)
  - Myelosuppression [Unknown]
